FAERS Safety Report 6535429-9 (Version None)
Quarter: 2010Q1

REPORT INFORMATION
  Report Type: 
  Country: None (occurrence: None)
  Receive Date: 20100105
  Receipt Date: 20091221
  Transmission Date: 20100710
  Serious: Yes (Death, Hospitalization)
  Sender: FDA-Public Use
  Company Number: 2009003762

PATIENT
  Age: 67 Year
  Sex: Male
  Weight: 62.1 kg

DRUGS (7)
  1. ERLOTINIB HYDROCHLORIDE [Suspect]
     Indication: NON-SMALL CELL LUNG CANCER
     Dosage: (150 MG, QD), ORAL
     Route: 048
     Dates: start: 20090910, end: 20091103
  2. ALBUTEROL [Concomitant]
  3. ACETYLSALICYLIC ACID SRT [Concomitant]
  4. FERROUS SULFATE TAB [Concomitant]
  5. COMPAZINE [Concomitant]
  6. OXYCODONE HCL [Concomitant]
  7. ATROVENT [Concomitant]

REACTIONS (13)
  - BLOOD ALBUMIN DECREASED [None]
  - BLOOD PRESSURE DECREASED [None]
  - DECREASED APPETITE [None]
  - DEHYDRATION [None]
  - DIARRHOEA [None]
  - DYSPNOEA [None]
  - DYSSTASIA [None]
  - FATIGUE [None]
  - MALIGNANT NEOPLASM PROGRESSION [None]
  - METASTASES TO LIVER [None]
  - NON-SMALL CELL LUNG CANCER METASTATIC [None]
  - PALLOR [None]
  - TACHYCARDIA [None]
